FAERS Safety Report 5301270-8 (Version None)
Quarter: 2007Q2

REPORT INFORMATION
  Report Type: 
  Country: None (occurrence: None)
  Receive Date: 20070411
  Receipt Date: 20070330
  Transmission Date: 20071010
  Serious: Yes (Life-Threatening)
  Sender: FDA-Public Use
  Company Number: 2007-00775

PATIENT
  Age: 71 Year
  Sex: Female
  Weight: 71 kg

DRUGS (5)
  1. VELCADE [Suspect]
     Indication: MULTIPLE MYELOMA
     Dosage: 1.30 MG/M2, UNK, INTRAVENOUS
     Route: 042
     Dates: start: 20070209, end: 20070101
  2. TYLEX (PHENYLEPHRINE HYDROCHLORIDE, PARACETAMOL, CARBINOXAMINE MALEATE [Suspect]
     Indication: BONE PAIN
  3. CODEINE SUL TAB [Suspect]
  4. ACETAMINOPHEN [Suspect]
  5. TRAMADOL HCL [Concomitant]

REACTIONS (7)
  - ANOREXIA [None]
  - CONDITION AGGRAVATED [None]
  - DRUG INEFFECTIVE [None]
  - NEUROPATHY [None]
  - SPINAL CORD COMPRESSION [None]
  - THROMBOCYTOPENIA [None]
  - WEIGHT DECREASED [None]
